FAERS Safety Report 14033685 (Version 4)
Quarter: 2017Q4

REPORT INFORMATION
  Report Type: Spontaneous
  Country: JP (occurrence: JP)
  Receive Date: 20171003
  Receipt Date: 20171218
  Transmission Date: 20180321
  Serious: Yes (Other)
  Sender: FDA-Public Use
  Company Number: PHJP2017JP028222

PATIENT
  Age: 40 Year
  Sex: Male
  Weight: 64 kg

DRUGS (18)
  1. EPINASTINE. [Concomitant]
     Active Substance: EPINASTINE HYDROCHLORIDE
     Indication: PRURITUS
     Dosage: 20 MG, QD
     Route: 048
     Dates: end: 20170705
  2. DERMOVATE [Concomitant]
     Active Substance: CLOBETASOL
     Indication: PSORIASIS
     Dosage: 1 G, UNK
     Route: 061
     Dates: end: 20150909
  3. BUFFERIN [Concomitant]
     Active Substance: ASPIRIN
     Indication: HEADACHE
     Dosage: UNK, PRN
     Route: 048
     Dates: end: 20170705
  4. MARODEX D [Concomitant]
     Indication: PSORIASIS
     Dosage: 0.3 G, UNK
     Route: 061
     Dates: start: 20170118, end: 20170805
  5. ZOLPIDEM [Concomitant]
     Active Substance: ZOLPIDEM\ZOLPIDEM TARTRATE
     Indication: INSOMNIA
     Dosage: 10 MG, QD
     Route: 048
     Dates: end: 20170705
  6. TIGASON [Concomitant]
     Active Substance: ETRETINATE
     Indication: PSORIASIS
     Dosage: UNK
     Route: 065
  7. ANTEBATE [Concomitant]
     Active Substance: BETAMETHASONE DIPROPIONATE
     Indication: PSORIASIS
     Dosage: 1 G, UNK
     Route: 061
     Dates: start: 20150909, end: 20151104
  8. FEXOFENADINE [Concomitant]
     Active Substance: FEXOFENADINE\FEXOFENADINE HYDROCHLORIDE
     Indication: PSORIASIS
     Dosage: 60 MG, BID
     Route: 048
     Dates: start: 20151007, end: 20160330
  9. NEORAL [Suspect]
     Active Substance: CYCLOSPORINE
     Dosage: 300 MG, UNK
     Route: 048
     Dates: start: 20150512, end: 20170703
  10. TEPRENONE [Concomitant]
     Active Substance: TEPRENONE
     Indication: CHRONIC GASTRITIS
     Dosage: 50 MG, BID
     Route: 048
     Dates: end: 20151007
  11. DALACIN [Concomitant]
     Active Substance: CLINDAMYCIN
     Indication: PRURITUS
     Dosage: 1 ML, UNK
     Route: 061
     Dates: end: 20150812
  12. NEORAL [Suspect]
     Active Substance: CYCLOSPORINE
     Dosage: 200 MG, QD
     Route: 048
     Dates: end: 201106
  13. BONALFA [Concomitant]
     Indication: PSORIASIS
     Dosage: 0.5 G, UNK
     Route: 061
     Dates: end: 20150909
  14. RULID [Concomitant]
     Active Substance: ROXITHROMYCIN
     Indication: FOLLICULITIS
     Dosage: 150 MG, BID
     Route: 048
     Dates: end: 20160106
  15. FEXOFENADINE [Concomitant]
     Active Substance: FEXOFENADINE\FEXOFENADINE HYDROCHLORIDE
     Dosage: 60 MG, BID
     Route: 048
     Dates: start: 20161012, end: 20170705
  16. NEORAL [Suspect]
     Active Substance: CYCLOSPORINE
     Indication: PSORIATIC ARTHROPATHY
     Dosage: UNK
     Route: 048
  17. DOVONEX [Concomitant]
     Active Substance: CALCIPOTRIENE
     Indication: PSORIASIS
     Dosage: 3 G, UNK
     Route: 065
     Dates: end: 20151104
  18. LOXOPROFEN NA [Concomitant]
     Active Substance: LOXOPROFEN SODIUM
     Indication: ARTHRALGIA
     Dosage: 60 MG, PRN
     Route: 048
     Dates: start: 20170118, end: 20170412

REACTIONS (6)
  - Blood urine present [Unknown]
  - Renal impairment [Recovered/Resolved]
  - Blood creatinine increased [Recovered/Resolved]
  - Arthralgia [Unknown]
  - Psoriasis [Unknown]
  - Psoriatic arthropathy [Unknown]

NARRATIVE: CASE EVENT DATE: 201106
